FAERS Safety Report 16542514 (Version 1)
Quarter: 2019Q3

REPORT INFORMATION
  Report Type: Spontaneous
  Country: US (occurrence: US)
  Receive Date: 20190709
  Receipt Date: 20190709
  Transmission Date: 20191004
  Serious: No
  Sender: FDA-Public Use
  Company Number: US-TEVA-2019-US-1070436

PATIENT
  Age: 55 Year
  Sex: Female

DRUGS (3)
  1. PREDNISONE. [Suspect]
     Active Substance: PREDNISONE
     Indication: KERATOSIS FOLLICULAR
     Route: 048
  2. TRIAMCINOLONE [Suspect]
     Active Substance: TRIAMCINOLONE
     Indication: KERATOSIS FOLLICULAR
     Route: 061
  3. TACROLIMUS. [Suspect]
     Active Substance: TACROLIMUS
     Indication: KERATOSIS FOLLICULAR
     Route: 061

REACTIONS (1)
  - Drug ineffective [Unknown]
